FAERS Safety Report 5626843-4 (Version None)
Quarter: 2008Q1

REPORT INFORMATION
  Report Type: 
  Country: None (occurrence: None)
  Receive Date: 20080212
  Receipt Date: 20080131
  Transmission Date: 20080703
  Serious: Yes (Disabling, Other)
  Sender: FDA-Public Use
  Company Number: GXKR2008US01311

PATIENT
  Age: 18 Year
  Sex: Male

DRUGS (1)
  1. FLUOXETINE [Suspect]
     Indication: ANXIETY
     Dosage: 20 MG, QD
     Dates: start: 19960101

REACTIONS (7)
  - EJACULATION DISORDER [None]
  - ERECTILE DYSFUNCTION [None]
  - INAPPROPRIATE SCHEDULE OF DRUG ADMINISTRATION [None]
  - MEMORY IMPAIRMENT [None]
  - SEXUAL DYSFUNCTION [None]
  - SOMNOLENCE [None]
  - WEIGHT DECREASED [None]
